FAERS Safety Report 25334322 (Version 2)
Quarter: 2025Q2

REPORT INFORMATION
  Report Type: Spontaneous
  Country: MK (occurrence: MK)
  Receive Date: 20250520
  Receipt Date: 20250529
  Transmission Date: 20250717
  Serious: Yes (Hospitalization)
  Sender: TEVA
  Company Number: MK-TEVA-VS-3331596

PATIENT
  Age: 62 Year
  Sex: Female

DRUGS (4)
  1. PANTOPRAZOLE [Suspect]
     Active Substance: PANTOPRAZOLE
     Indication: Antacid therapy
     Route: 065
     Dates: start: 2022
  2. NITROFURANTOIN [Suspect]
     Active Substance: NITROFURANTOIN
     Indication: Urinary tract infection
     Route: 065
     Dates: start: 2022
  3. ACYCLOVIR [Concomitant]
     Active Substance: ACYCLOVIR
     Indication: Encephalitis
     Route: 065
     Dates: start: 2022, end: 2022
  4. CEFTRIAXONE [Suspect]
     Active Substance: CEFTRIAXONE
     Indication: Encephalitis
     Route: 065
     Dates: start: 2022, end: 2022

REACTIONS (2)
  - Clostridium difficile infection [Recovering/Resolving]
  - Pseudomembranous colitis [Recovering/Resolving]

NARRATIVE: CASE EVENT DATE: 20220101
